FAERS Safety Report 8564924-6 (Version None)
Quarter: 2012Q3

REPORT INFORMATION
  Report Type: 
  Country: None (occurrence: None)
  Receive Date: 20120803
  Receipt Date: 20120729
  Transmission Date: 20120928
  Serious: Yes (Hospitalization)
  Sender: FDA-Public Use
  Company Number: US-PFIZER INC-2012182991

PATIENT
  Sex: Female
  Weight: 79.819 kg

DRUGS (6)
  1. ROBITUSSIN PEAK COLD MAXIMUM STRENGTH MULTI-SYMPTOM COLD [Suspect]
     Indication: BRONCHITIS
     Dosage: UNK (TWO TEASPOONS), 6X/DAY
     Dates: start: 20120724, end: 20120728
  2. ROBITUSSIN PEAK COLD MAXIMUM STRENGTH MULTI-SYMPTOM COLD [Suspect]
     Indication: PHARYNGITIS
  3. EFFEXOR XR [Concomitant]
     Dosage: UNK
  4. ROBITUSSIN PEAK COLD MAXIMUM STRENGTH MULTI-SYMPTOM COLD [Suspect]
     Indication: INFLUENZA
  5. TAMIFLU [Suspect]
     Dosage: UNK
  6. LEVOTHYROXINE SODIUM [Concomitant]
     Indication: THYROID DISORDER
     Dosage: UNK

REACTIONS (4)
  - MALAISE [None]
  - CHEST DISCOMFORT [None]
  - ASTHENIA [None]
  - NAUSEA [None]
